FAERS Safety Report 11047857 (Version 1)
Quarter: 2015Q2

REPORT INFORMATION
  Report Type: Spontaneous
  Country: US (occurrence: None)
  Receive Date: 20150417
  Receipt Date: 20150417
  Transmission Date: 20150821
  Serious: Yes (Disabling, Other)
  Sender: FDA-Public Use
  Company Number: None

PATIENT
  Age: 14 Year
  Sex: Female
  Weight: 69.1 kg

DRUGS (1)
  1. GUANFACINE. [Suspect]
     Active Substance: GUANFACINE
     Indication: ATTENTION DEFICIT/HYPERACTIVITY DISORDER
     Route: 048
     Dates: start: 20150107

REACTIONS (8)
  - Tremor [None]
  - Activities of daily living impaired [None]
  - Product substitution issue [None]
  - Aggression [None]
  - Abnormal behaviour [None]
  - Drug effect decreased [None]
  - Bruxism [None]
  - Dysphemia [None]

NARRATIVE: CASE EVENT DATE: 20150107
